FAERS Safety Report 9375218 (Version 1)
Quarter: 2013Q2

REPORT INFORMATION
  Report Type: Spontaneous
  Country: EC (occurrence: EC)
  Receive Date: 20130628
  Receipt Date: 20130628
  Transmission Date: 20140414
  Serious: Yes (Death)
  Sender: FDA-Public Use
  Company Number: EC-PFIZER INC-2013192666

PATIENT
  Age: 92 Year
  Sex: Female

DRUGS (1)
  1. NORVASC [Suspect]
     Dosage: 10 MG, 1X/DAY
     Route: 048
     Dates: start: 20051122, end: 20130417

REACTIONS (1)
  - Death [Fatal]
